FAERS Safety Report 9207839 (Version 2)
Quarter: 2013Q2

REPORT INFORMATION
  Report Type: Spontaneous
  Country: JP (occurrence: JP)
  Receive Date: 20130403
  Receipt Date: 20130516
  Transmission Date: 20140414
  Serious: Yes (Other)
  Sender: FDA-Public Use
  Company Number: JP-GLAXOSMITHKLINE-B0862689A

PATIENT
  Age: 27 Year
  Sex: Female
  Weight: 57 kg

DRUGS (9)
  1. LAMICTAL [Suspect]
     Indication: PRODUCT USED FOR UNKNOWN INDICATION
     Route: 048
  2. PIPERIDOLATE HYDROCHLORIDE [Concomitant]
     Indication: ABORTION THREATENED
     Route: 048
     Dates: start: 20120727, end: 20120731
  3. ADONA (AC-17) [Concomitant]
     Route: 048
  4. TRANSAMIN [Concomitant]
     Route: 048
  5. PL [Concomitant]
     Indication: NASOPHARYNGITIS
     Route: 048
     Dates: start: 20120823, end: 20120827
  6. LUTEONIN [Concomitant]
     Indication: ABORTION THREATENED
     Route: 048
     Dates: start: 20120920
  7. LUTEONIN [Concomitant]
     Indication: THREATENED LABOUR
     Route: 048
     Dates: start: 20121228, end: 20130120
  8. FERROMIA [Concomitant]
     Indication: ANAEMIA
     Route: 048
     Dates: start: 20121102, end: 20121116
  9. MAGMITT [Concomitant]
     Indication: CONSTIPATION
     Route: 048
     Dates: start: 20130108, end: 20130120

REACTIONS (7)
  - Abortion threatened [Unknown]
  - Nasopharyngitis [Unknown]
  - Anaemia [Unknown]
  - Threatened labour [Unknown]
  - Constipation [Unknown]
  - Exposure during pregnancy [Unknown]
  - Live birth [Unknown]
